FAERS Safety Report 17250118 (Version 1)
Quarter: 2020Q1

REPORT INFORMATION
  Report Type: Report from Study
  Country: IL (occurrence: IL)
  Receive Date: 20200109
  Receipt Date: 20200109
  Transmission Date: 20200409
  Serious: Yes (Other)
  Sender: FDA-Public Use
  Company Number: IL-ROCHE-2515504

PATIENT

DRUGS (2)
  1. ASPIRIN [ACETYLSALICYLIC ACID] [Concomitant]
     Active Substance: ASPIRIN
     Dosage: MORE THAN OR EQUAL TO 100 MG
     Route: 065
  2. ALTEPLASE. [Suspect]
     Active Substance: ALTEPLASE
     Indication: PROSTHETIC CARDIAC VALVE THROMBOSIS
     Route: 042

REACTIONS (1)
  - Metastatic neoplasm [Unknown]
